FAERS Safety Report 17273940 (Version 1)
Quarter: 2020Q1

REPORT INFORMATION
  Report Type: Spontaneous
  Country: CH (occurrence: CH)
  Receive Date: 20200115
  Receipt Date: 20200115
  Transmission Date: 20200409
  Serious: Yes (Hospitalization)
  Sender: FDA-Public Use
  Company Number: CH-ALNYLAM PHARMACEUTICALS, INC.-ALN-2020-000030

PATIENT

DRUGS (1)
  1. ONPATTRO [Suspect]
     Active Substance: PATISIRAN SODIUM
     Indication: HEREDITARY NEUROPATHIC AMYLOIDOSIS
     Route: 042

REACTIONS (4)
  - Intentional dose omission [Unknown]
  - Hernia repair [Unknown]
  - Implantable defibrillator insertion [Unknown]
  - No adverse event [Unknown]
